FAERS Safety Report 21549953 (Version 3)
Quarter: 2022Q4

REPORT INFORMATION
  Report Type: Spontaneous
  Country: US (occurrence: US)
  Receive Date: 20221103
  Receipt Date: 20221216
  Transmission Date: 20230112
  Serious: Yes (Other)
  Sender: FDA-Public Use
  Company Number: US-PROCTER_AND_GAMBLE-GS22071791

PATIENT
  Sex: Female
  Weight: 58.957 kg

DRUGS (3)
  1. CREST GUM DETOXIFY [Suspect]
     Active Substance: STANNOUS FLUORIDE
     Indication: Dental disorder prophylaxis
     Dosage: PEA SIZE, TWICE DAILY.
     Route: 002
     Dates: start: 202205, end: 202207
  2. CREST GUM DETOXIFY GENTLE WHITENING [Suspect]
     Active Substance: STANNOUS FLUORIDE
     Indication: Dental disorder prophylaxis
     Dosage: PEA SIZE, TWICE DAILY.
     Route: 002
     Dates: start: 202205, end: 202207
  3. LISTERINE ANTISEPTIC MOUTHWASH [Concomitant]
     Active Substance: EUCALYPTOL\MENTHOL\METHYL SALICYLATE\THYMOL

REACTIONS (20)
  - Metaplasia [Unknown]
  - Cyst [Unknown]
  - Salivary gland mucocoele [Unknown]
  - Fibrosis [Unknown]
  - Excessive granulation tissue [Unknown]
  - Noninfective gingivitis [Unknown]
  - Gingival discolouration [Unknown]
  - Gingival disorder [Recovering/Resolving]
  - Tooth discolouration [Unknown]
  - Tongue disorder [Unknown]
  - Swelling [Unknown]
  - Swelling face [Unknown]
  - Ill-defined disorder [Unknown]
  - Drainage [Unknown]
  - Gingival pain [Unknown]
  - Gingival swelling [Unknown]
  - Toothache [Unknown]
  - Gingival ulceration [Unknown]
  - Gingival erythema [Unknown]
  - Gingival erosion [Unknown]

NARRATIVE: CASE EVENT DATE: 20220101
